FAERS Safety Report 23048784 (Version 1)
Quarter: 2023Q4

REPORT INFORMATION
  Report Type: Spontaneous
  Country: JP (occurrence: JP)
  Receive Date: 20231010
  Receipt Date: 20231010
  Transmission Date: 20240110
  Serious: Yes (Other)
  Sender: FDA-Public Use
  Company Number: JP-002147023-NVSJ2023JP014607

PATIENT
  Sex: Male

DRUGS (8)
  1. PAZOPANIB [Suspect]
     Active Substance: PAZOPANIB
     Indication: Osteosarcoma
     Dosage: UNK
     Route: 065
  2. IFOSFAMIDE [Suspect]
     Active Substance: IFOSFAMIDE
     Indication: Osteosarcoma
     Dosage: UNK, ICE REGIMEN
     Route: 065
  3. IFOSFAMIDE [Suspect]
     Active Substance: IFOSFAMIDE
     Dosage: UNK, LOWER DOSE OF ICE REGIMEN
     Route: 065
  4. CISPLATIN [Suspect]
     Active Substance: CISPLATIN
     Indication: Osteosarcoma
     Dosage: UNK, NECO-95J
     Route: 065
  5. CISPLATIN [Suspect]
     Active Substance: CISPLATIN
     Dosage: UNK, ICE REGIMEN
     Route: 065
  6. CISPLATIN [Suspect]
     Active Substance: CISPLATIN
     Dosage: UNK, LOWER DOSE OF ICE REGIMEN
     Route: 065
  7. ETOPOSIDE [Suspect]
     Active Substance: ETOPOSIDE
     Indication: Osteosarcoma
     Dosage: UNK, ICE REGIMEN
     Route: 065
  8. ETOPOSIDE [Suspect]
     Active Substance: ETOPOSIDE
     Dosage: UNK, LOWER DOSE OF ICE REGIMEN
     Route: 065

REACTIONS (3)
  - Platelet count decreased [Unknown]
  - Nausea [Unknown]
  - Product use in unapproved indication [Unknown]
